FAERS Safety Report 8602157-5 (Version None)
Quarter: 2012Q3

REPORT INFORMATION
  Report Type: 
  Country: None (occurrence: None)
  Receive Date: 20120817
  Receipt Date: 20120809
  Transmission Date: 20120928
  Serious: Yes (Other)
  Sender: FDA-Public Use
  Company Number: NL-JNJFOC-20090101553

PATIENT
  Sex: Female

DRUGS (5)
  1. REMICADE [Suspect]
     Route: 050
     Dates: start: 20071206
  2. REMICADE [Suspect]
     Indication: EXPOSURE VIA SEMEN
     Route: 050
     Dates: start: 20071228
  3. PENTASA [Concomitant]
     Indication: EXPOSURE VIA SEMEN
     Route: 050
     Dates: start: 19990623
  4. REMICADE [Suspect]
     Route: 050
     Dates: start: 20080115
  5. REMICADE [Suspect]
     Route: 050
     Dates: start: 20080304

REACTIONS (2)
  - MATERNAL EXPOSURE DURING PREGNANCY [None]
  - CAESAREAN SECTION [None]
